FAERS Safety Report 24898849 (Version 1)
Quarter: 2025Q1

REPORT INFORMATION
  Report Type: Spontaneous
  Country: US (occurrence: None)
  Receive Date: 20250128
  Receipt Date: 20250128
  Transmission Date: 20250409
  Serious: Yes (Other)
  Sender: FDA-CTU
  Company Number: None

PATIENT
  Age: 81 Year
  Sex: Female

DRUGS (8)
  1. ACTEMRA [Suspect]
     Active Substance: TOCILIZUMAB
     Indication: Senile osteoporosis
     Dosage: INJECT 162 MG ONCE WEEKLY DX: TEMPORAL ARTERITIS
     Route: 058
  2. PREDNISONE [Suspect]
     Active Substance: PREDNISONE
  3. ACTEMRA [Concomitant]
     Active Substance: TOCILIZUMAB
  4. ELIQUIS [Concomitant]
     Active Substance: APIXABAN
  5. MELOXICAM [Concomitant]
     Active Substance: MELOXICAM
  6. METFORMIN [Concomitant]
     Active Substance: METFORMIN HYDROCHLORIDE
  7. MIRAPEX ER [Concomitant]
     Active Substance: PRAMIPEXOLE DIHYDROCHLORIDE
  8. PROLIA [Concomitant]
     Active Substance: DENOSUMAB

REACTIONS (6)
  - Wrist surgery [None]
  - Therapy interrupted [None]
  - Blood glucose abnormal [None]
  - Heart rate increased [None]
  - Vasculitis [None]
  - Giant cell arteritis [None]

NARRATIVE: CASE EVENT DATE: 20241219
